FAERS Safety Report 13799252 (Version 1)
Quarter: 2017Q3

REPORT INFORMATION
  Report Type: Spontaneous
  Country: US (occurrence: US)
  Receive Date: 20170727
  Receipt Date: 20170727
  Transmission Date: 20171127
  Serious: No
  Sender: FDA-Public Use
  Company Number: US-JNJFOC-20170313326

PATIENT
  Age: 83 Year
  Sex: Female

DRUGS (5)
  1. ASPIRIN. [Concomitant]
     Active Substance: ASPIRIN
     Indication: PRODUCT USED FOR UNKNOWN INDICATION
     Dosage: DAILY
     Route: 065
  2. WOMENS ROGAINE [Suspect]
     Active Substance: MINOXIDIL
     Route: 061
  3. FISH OIL [Concomitant]
     Active Substance: FISH OIL
     Indication: BLOOD CHOLESTEROL ABNORMAL
     Dosage: DAILY
     Route: 065
  4. NIACIN. [Concomitant]
     Active Substance: NIACIN
     Indication: BLOOD CHOLESTEROL ABNORMAL
     Dosage: DAILY
     Route: 065
  5. WOMENS ROGAINE [Suspect]
     Active Substance: MINOXIDIL
     Indication: ALOPECIA
     Route: 061
     Dates: start: 2016

REACTIONS (2)
  - Alopecia [Recovering/Resolving]
  - Drug ineffective for unapproved indication [Unknown]
